FAERS Safety Report 9227450 (Version 1)
Quarter: 2013Q2

REPORT INFORMATION
  Report Type: Spontaneous
  Country: CH (occurrence: CH)
  Receive Date: 20130412
  Receipt Date: 20130412
  Transmission Date: 20140414
  Serious: Yes (Other)
  Sender: FDA-Public Use
  Company Number: CH-ASTELLAS-2013US003890

PATIENT
  Sex: Female
  Weight: 60 kg

DRUGS (1)
  1. TARCEVA [Suspect]
     Indication: NON-SMALL CELL LUNG CANCER
     Dosage: 125 MG, UID/QD
     Route: 048

REACTIONS (3)
  - Incorrect dose administered [Unknown]
  - Cataract [Not Recovered/Not Resolved]
  - Rash [Not Recovered/Not Resolved]
